FAERS Safety Report 13913838 (Version 2)
Quarter: 2017Q4

REPORT INFORMATION
  Report Type: Spontaneous
  Country: US (occurrence: US)
  Receive Date: 20170829
  Receipt Date: 20171010
  Transmission Date: 20180320
  Serious: Yes (Other)
  Sender: FDA-Public Use
  Company Number: US-PFIZER INC-2017368650

PATIENT
  Age: 84 Year
  Sex: Female
  Weight: 53 kg

DRUGS (2)
  1. CELEBREX [Suspect]
     Active Substance: CELECOXIB
     Indication: PAIN
     Dosage: UNK
  2. CELEBREX [Suspect]
     Active Substance: CELECOXIB
     Indication: COLITIS ULCERATIVE
     Dosage: 200 MG, 1X/DAY
     Route: 048
     Dates: start: 201707

REACTIONS (3)
  - Renal impairment [Unknown]
  - Muscle spasms [Recovering/Resolving]
  - Drug ineffective [Unknown]

NARRATIVE: CASE EVENT DATE: 20170705
